FAERS Safety Report 8165732-0 (Version None)
Quarter: 2012Q1

REPORT INFORMATION
  Report Type: 
  Country: None (occurrence: None)
  Receive Date: 20120227
  Receipt Date: 20110120
  Transmission Date: 20120608
  Serious: Yes (Other)
  Sender: FDA-Public Use
  Company Number: US-MYLANLABS-2011S1000677

PATIENT
  Sex: Female

DRUGS (2)
  1. AMNESTEEM [Suspect]
     Route: 048
     Dates: start: 20101101
  2. AMNESTEEM [Suspect]
     Indication: SCAR
     Route: 048
     Dates: end: 20101101

REACTIONS (1)
  - LYMPHADENOPATHY [None]
